FAERS Safety Report 9500300 (Version 1)
Quarter: 2013Q3

REPORT INFORMATION
  Report Type: Spontaneous
  Country: US (occurrence: None)
  Receive Date: 20130904
  Receipt Date: 20130904
  Transmission Date: 20140515
  Serious: Yes (Disabling)
  Sender: FDA-Public Use
  Company Number: None

PATIENT
  Age: 43 Year
  Sex: Female
  Weight: 77.11 kg

DRUGS (1)
  1. AVIANE [Suspect]
     Indication: MENORRHAGIA
     Route: 048
     Dates: start: 20130702, end: 20130924

REACTIONS (1)
  - Portal vein thrombosis [None]
